FAERS Safety Report 7491212-1 (Version None)
Quarter: 2011Q2

REPORT INFORMATION
  Report Type: 
  Country: None (occurrence: None)
  Receive Date: 20110518
  Receipt Date: 20110518
  Transmission Date: 20111010
  Serious: Yes (Hospitalization)
  Sender: FDA-Public Use
  Company Number: None

PATIENT
  Age: 31 Year
  Sex: Female
  Weight: 84.369 kg

DRUGS (4)
  1. SEROQUEL [Suspect]
     Indication: DEPRESSION
     Dosage: 100MG 1 NIGHT PO
     Route: 048
  2. SEROQUEL [Suspect]
     Indication: BIPOLAR DISORDER
     Dosage: 100MG 1 NIGHT PO
     Route: 048
  3. SEROQUEL [Suspect]
     Indication: BIPOLAR DISORDER
     Dosage: 50MG 1 MORNING PO
     Route: 048
  4. SEROQUEL [Suspect]
     Indication: DEPRESSION
     Dosage: 50MG 1 MORNING PO
     Route: 048

REACTIONS (5)
  - HEAD INJURY [None]
  - INJURY [None]
  - FALL [None]
  - GRAND MAL CONVULSION [None]
  - LACERATION [None]
